FAERS Safety Report 23278483 (Version 1)
Quarter: 2023Q4

REPORT INFORMATION
  Report Type: Spontaneous
  Country: US (occurrence: US)
  Receive Date: 20231208
  Receipt Date: 20231208
  Transmission Date: 20240110
  Serious: No
  Sender: FDA-Public Use
  Company Number: US-SA-SAC20231206000909

PATIENT
  Sex: Male

DRUGS (2)
  1. DUPIXENT [Suspect]
     Active Substance: DUPILUMAB
     Indication: Dermatitis atopic
     Dosage: DOSE - 300MG/2ML FREQUENCY - EVERY 14 DAYS
     Route: 058
     Dates: start: 202209
  2. SEVELAMER [Concomitant]
     Active Substance: SEVELAMER
     Dosage: UNK

REACTIONS (2)
  - Constipation [Unknown]
  - Diarrhoea [Unknown]
